FAERS Safety Report 16794402 (Version 1)
Quarter: 2019Q3

REPORT INFORMATION
  Report Type: Spontaneous
  Country: US (occurrence: US)
  Receive Date: 20190911
  Receipt Date: 20190911
  Transmission Date: 20191005
  Serious: Yes (Other)
  Sender: FDA-Public Use
  Company Number: PHHY2019US208024

PATIENT
  Age: 24 Year
  Sex: Male

DRUGS (1)
  1. PREDNISONE. [Suspect]
     Active Substance: PREDNISONE
     Indication: PARADOXICAL DRUG REACTION
     Dosage: UNK
     Route: 065

REACTIONS (6)
  - Cough [Unknown]
  - Lymphadenopathy [Unknown]
  - Atelectasis [Unknown]
  - Product use in unapproved indication [Unknown]
  - Paradoxical drug reaction [Unknown]
  - Dyspnoea [Unknown]
